FAERS Safety Report 25310726 (Version 1)
Quarter: 2025Q2

REPORT INFORMATION
  Report Type: Spontaneous
  Country: CN (occurrence: CN)
  Receive Date: 20250514
  Receipt Date: 20250514
  Transmission Date: 20250717
  Serious: Yes (Hospitalization)
  Sender: BEIGENE
  Company Number: CN-BEIGENE-BGN-2025-007374

PATIENT
  Age: 72 Year

DRUGS (12)
  1. TISLELIZUMAB [Suspect]
     Active Substance: TISLELIZUMAB
     Indication: Pancreatic carcinoma
  2. TISLELIZUMAB [Suspect]
     Active Substance: TISLELIZUMAB
  3. TISLELIZUMAB [Suspect]
     Active Substance: TISLELIZUMAB
  4. TISLELIZUMAB [Suspect]
     Active Substance: TISLELIZUMAB
  5. TISLELIZUMAB [Suspect]
     Active Substance: TISLELIZUMAB
     Route: 041
  6. TISLELIZUMAB [Suspect]
     Active Substance: TISLELIZUMAB
  7. TISLELIZUMAB [Suspect]
     Active Substance: TISLELIZUMAB
  8. TISLELIZUMAB [Suspect]
     Active Substance: TISLELIZUMAB
     Route: 041
  9. GEMCITABINE HYDROCHLORIDE [Suspect]
     Active Substance: GEMCITABINE HYDROCHLORIDE
     Indication: Pancreatic carcinoma
  10. GEMCITABINE HYDROCHLORIDE [Suspect]
     Active Substance: GEMCITABINE HYDROCHLORIDE
  11. GEMCITABINE HYDROCHLORIDE [Suspect]
     Active Substance: GEMCITABINE HYDROCHLORIDE
  12. GEMCITABINE HYDROCHLORIDE [Suspect]
     Active Substance: GEMCITABINE HYDROCHLORIDE
     Route: 041

REACTIONS (1)
  - Liver injury [Not Recovered/Not Resolved]
